FAERS Safety Report 5122870-4 (Version None)
Quarter: 2006Q4

REPORT INFORMATION
  Report Type: 
  Country: None (occurrence: None)
  Receive Date: 20061004
  Receipt Date: 20061004
  Transmission Date: 20070319
  Serious: No
  Sender: FDA-Public Use
  Company Number: None

PATIENT
  Age: 88 Year
  Sex: Male
  Weight: 64 kg

DRUGS (1)
  1. HCTZ 12.5 MG /IRBESERTAN 50 MG MERCK [Suspect]
     Indication: HYPERTENSION
     Dosage: 12.5 MG/50 MG PO QAM
     Route: 048
     Dates: start: 20040923, end: 20050126

REACTIONS (1)
  - HYPONATRAEMIA [None]
